FAERS Safety Report 4975168-9 (Version None)
Quarter: 2006Q2

REPORT INFORMATION
  Report Type: 
  Country: None (occurrence: None)
  Receive Date: 20060417
  Receipt Date: 20060417
  Transmission Date: 20061013
  Serious: Yes (Life-Threatening, Hospitalization)
  Sender: FDA-Public Use
  Company Number: None

PATIENT
  Sex: Male
  Weight: 109.3169 kg

DRUGS (13)
  1. ZOCOR [Suspect]
     Indication: DYSLIPIDAEMIA
     Dosage: 1 TABLET-40 MG- DAILY PO [MANY YEARS]
     Route: 048
  2. VANCOMYCIN [Concomitant]
  3. TRAZODONE HCL [Concomitant]
  4. RENAGEL [Concomitant]
  5. MIRALAX [Concomitant]
  6. NEPHROVITE [Concomitant]
  7. PREVACID [Concomitant]
  8. ISORDIL [Concomitant]
  9. NOVOLIN N [Concomitant]
  10. CELEXA [Concomitant]
  11. ASPIRIN [Concomitant]
  12. NORVASC [Concomitant]
  13. ALLOPURINOL [Concomitant]

REACTIONS (6)
  - BLOOD CREATINE PHOSPHOKINASE INCREASED [None]
  - FATIGUE [None]
  - LIVER FUNCTION TEST ABNORMAL [None]
  - MUSCULAR WEAKNESS [None]
  - MYOPATHY [None]
  - RHABDOMYOLYSIS [None]
